FAERS Safety Report 9484931 (Version 1)
Quarter: 2013Q3

REPORT INFORMATION
  Report Type: Spontaneous
  Country: US (occurrence: US)
  Receive Date: 20130828
  Receipt Date: 20130828
  Transmission Date: 20140515
  Serious: No
  Sender: FDA-Public Use
  Company Number: US-ABBOTT-13P-163-1100981-00

PATIENT
  Age: 74 Year
  Sex: Male
  Weight: 86.71 kg

DRUGS (10)
  1. ANDROGEL [Suspect]
     Indication: BLOOD TESTOSTERONE DECREASED
     Dates: start: 20130606
  2. TESTIM [Concomitant]
     Indication: BLOOD TESTOSTERONE DECREASED
     Dates: start: 20130530
  3. TRAMADOL [Concomitant]
     Indication: PAIN
  4. LOSARTAN [Concomitant]
     Indication: HYPERTENSION
  5. AMLODIPINE [Concomitant]
     Indication: HYPERTENSION
  6. IMODIUM [Concomitant]
     Indication: FAECAL INCONTINENCE
  7. VALIUM [Concomitant]
     Indication: MUSCLE SPASMS
  8. PRILOSEC [Concomitant]
     Indication: GASTROOESOPHAGEAL REFLUX DISEASE
  9. TYLENOL [Concomitant]
     Indication: PAIN
  10. VITAMIN B 12 [Concomitant]
     Indication: VITAMIN B12 DEFICIENCY

REACTIONS (3)
  - Dysgeusia [Recovering/Resolving]
  - Headache [Recovered/Resolved]
  - Pain in extremity [Recovered/Resolved]
